FAERS Safety Report 19086573 (Version 2)
Quarter: 2021Q2

REPORT INFORMATION
  Report Type: Report from Study
  Country: FR (occurrence: FR)
  Receive Date: 20210402
  Receipt Date: 20210429
  Transmission Date: 20210717
  Serious: Yes (Death)
  Sender: FDA-Public Use
  Company Number: FR-PFIZER INC-2021333706

PATIENT
  Sex: Female

DRUGS (3)
  1. TRASTUZUMAB EMTANSINE [Suspect]
     Active Substance: ADO-TRASTUZUMAB EMTANSINE
     Indication: HER2 POSITIVE BREAST CANCER
     Dosage: 600 MG
     Route: 058
     Dates: start: 20201126
  2. CAPECITABINE. [Suspect]
     Active Substance: CAPECITABINE
     Indication: HER2 POSITIVE BREAST CANCER
     Dosage: 1250 UNK, 2X/DAY
     Dates: start: 20201126, end: 20210303
  3. TUCATINIB [Suspect]
     Active Substance: TUCATINIB
     Indication: HER2 POSITIVE BREAST CANCER
     Dosage: 300 MG, 2X/DAY
     Dates: start: 20201126, end: 20210303

REACTIONS (2)
  - Disease progression [Fatal]
  - Epilepsy [Fatal]

NARRATIVE: CASE EVENT DATE: 20210310
